FAERS Safety Report 5092564-2 (Version None)
Quarter: 2006Q3

REPORT INFORMATION
  Report Type: 
  Country: None (occurrence: None)
  Receive Date: 20060727
  Receipt Date: 20060619
  Transmission Date: 20061208
  Serious: Yes (Other)
  Sender: FDA-Public Use
  Company Number: 2006079053

PATIENT
  Age: 73 Year
  Sex: Female
  Weight: 55.3388 kg

DRUGS (8)
  1. LYRICA [Suspect]
     Indication: NEURALGIA
     Dosage: 50 MG (25 MG,2 IN 1 D),ORAL
     Route: 048
     Dates: start: 20060501
  2. XALATAN [Concomitant]
  3. TRUSOPT [Concomitant]
  4. TIMOPTIC [Concomitant]
  5. PREVACID [Concomitant]
  6. ATENOLOL [Concomitant]
  7. ASPIRIN [Concomitant]
  8. LIPITOR [Concomitant]

REACTIONS (1)
  - SOMNOLENCE [None]
